FAERS Safety Report 19442983 (Version 5)
Quarter: 2021Q3

REPORT INFORMATION
  Report Type: Spontaneous
  Country: JP (occurrence: JP)
  Receive Date: 20210621
  Receipt Date: 20210812
  Transmission Date: 20211014
  Serious: Yes (Hospitalization, Other)
  Sender: FDA-Public Use
  Company Number: JP-BRISTOL-MYERS SQUIBB COMPANY-BMS-2021-059864

PATIENT
  Age: 52 Year
  Sex: Female
  Weight: 49.7 kg

DRUGS (8)
  1. MIYA?BM [Concomitant]
     Active Substance: CLOSTRIDIUM BUTYRICUM SPORES STRAIN M-55
     Indication: GASTROINTESTINAL DISORDER
     Dosage: 1 DOSAGE FORM, Q8H
     Route: 048
  2. NOVAMIN [Concomitant]
     Indication: NAUSEA
     Dosage: 5 MILLIGRAM, PRN
     Route: 048
  3. OPDIVO [Suspect]
     Active Substance: NIVOLUMAB
     Dosage: 240 MILLIGRAM, Q2WK
     Route: 041
     Dates: start: 20210625
  4. LAGNOS NF [Concomitant]
     Indication: CONSTIPATION
     Dosage: 24 GRAM, Q8H
     Route: 048
  5. LOXOPROFEN [Concomitant]
     Active Substance: LOXOPROFEN
     Indication: PYREXIA
     Dosage: 60 MILLIGRAM, Q8H
     Route: 048
  6. OPDIVO [Suspect]
     Active Substance: NIVOLUMAB
     Indication: OVARIAN CANCER
     Dosage: 240 MILLIGRAM, Q2WK
     Route: 041
     Dates: start: 20210609
  7. RHYTHMY [Concomitant]
     Active Substance: RILMAZAFONE HYDROCHLORIDE
     Indication: INSOMNIA
     Dosage: 1 MILLIGRAM, PRN
     Route: 048
  8. LOXOPROFEN [Concomitant]
     Active Substance: LOXOPROFEN
     Indication: TUMOUR PAIN

REACTIONS (2)
  - Intentional product use issue [Unknown]
  - Abdominal infection [Recovered/Resolved]

NARRATIVE: CASE EVENT DATE: 20210609
